FAERS Safety Report 8613079-8 (Version None)
Quarter: 2012Q3

REPORT INFORMATION
  Report Type: 
  Country: None (occurrence: None)
  Receive Date: 20120822
  Receipt Date: 20120810
  Transmission Date: 20120928
  Serious: Yes (Other)
  Sender: FDA-Public Use
  Company Number: JP-VERTEX PHARMACEUTICAL INC.-2012-019701

PATIENT
  Age: 56 Year
  Sex: Female

DRUGS (16)
  1. ZOLPIDEM [Concomitant]
     Dosage: 10 MG, QD
     Route: 048
  2. REBETOL [Concomitant]
     Indication: HEPATITIS C
     Dosage: 400 MG, QD
     Route: 048
     Dates: start: 20120221, end: 20120326
  3. PEGINTERFERON ALFA-2B [Concomitant]
     Indication: HEPATITIS C
     Dosage: UNK
     Route: 058
     Dates: start: 20120221, end: 20120306
  4. PEGINTERFERON ALFA-2B [Concomitant]
     Dosage: 0.75 A?G/KG, UNK
     Route: 058
     Dates: start: 20120410, end: 20120423
  5. PEGINTERFERON ALFA-2B [Concomitant]
     Dosage: 1.5 A?G/KG, UNK
     Route: 058
     Dates: start: 20120403, end: 20120409
  6. REBETOL [Concomitant]
     Dosage: 200 MG, QD
     Route: 048
     Dates: start: 20120327, end: 20120611
  7. PEGINTERFERON ALFA-2B [Concomitant]
     Dosage: 0.75 A?G/KG, UNK
     Route: 058
     Dates: start: 20120501, end: 20120528
  8. PEGINTERFERON ALFA-2B [Concomitant]
     Dosage: 0.75 A?G/KG, UNK
     Route: 058
     Dates: start: 20120724, end: 20120730
  9. VX-950 [Suspect]
     Indication: HEPATITIS C
     Dosage: 1500 MG, UNK
     Route: 048
     Dates: start: 20120221, end: 20120515
  10. PEGINTERFERON ALFA-2B [Concomitant]
     Dosage: 1.5 A?G/KG, UNK
     Route: 058
     Dates: start: 20120424, end: 20120430
  11. REBETOL [Concomitant]
     Dosage: 400 MG, QD
     Route: 048
     Dates: start: 20120612, end: 20120807
  12. PEGINTERFERON ALFA-2B [Concomitant]
     Dosage: UNK
     Route: 058
     Dates: start: 20120605, end: 20120611
  13. PEGINTERFERON ALFA-2B [Concomitant]
     Dosage: 1.5 A?G/KG, UNK
     Route: 058
     Dates: start: 20120731, end: 20120807
  14. PEGINTERFERON ALFA-2B [Concomitant]
     Dosage: 0.75 A?G/KG, UNK
     Route: 058
     Dates: start: 20120313, end: 20120327
  15. PEGINTERFERON ALFA-2B [Concomitant]
     Dosage: 1.5 A?G/KG, UNK
     Route: 058
     Dates: start: 20120529, end: 20120604
  16. PEGINTERFERON ALFA-2B [Concomitant]
     Dosage: 1.5 A?G/KG, UNK
     Route: 058
     Dates: start: 20120612, end: 20120723

REACTIONS (1)
  - WHITE BLOOD CELL COUNT DECREASED [None]
